FAERS Safety Report 20461084 (Version 1)
Quarter: 2022Q1

REPORT INFORMATION
  Report Type: Spontaneous
  Country: US (occurrence: US)
  Receive Date: 20220211
  Receipt Date: 20220211
  Transmission Date: 20220423
  Serious: No
  Sender: FDA-Public Use
  Company Number: US-FERRINGPH-2021FE01070

PATIENT
  Sex: Male

DRUGS (1)
  1. NOVAREL [Suspect]
     Active Substance: CHORIOGONADOTROPIN ALFA
     Indication: Blood testosterone
     Dosage: 5000 UNITS 3 TIMES PER WEEK
     Route: 065

REACTIONS (3)
  - Blood testosterone decreased [Unknown]
  - Product availability issue [Unknown]
  - Product use in unapproved indication [Unknown]
